FAERS Safety Report 8970053 (Version 1)
Quarter: 2012Q4

REPORT INFORMATION
  Report Type: 
  Country: US (occurrence: US)
  Receive Date: 20121218
  Receipt Date: 20121218
  Transmission Date: 20130627
  Serious: No
  Sender: FDA-Public Use
  Company Number: US-ABBOTT-12P-163-0903228-00

PATIENT
  Age: 45 Year
  Sex: Female
  Weight: 77.18 kg

DRUGS (2)
  1. PROMETRIUM [Suspect]
     Indication: MENOPAUSE
     Route: 048
     Dates: start: 20120206, end: 20120208
  2. LOW DOSE BIRTH CONTROL PILL [Concomitant]
     Indication: PRODUCT USED FOR UNKNOWN INDICATION
     Dates: end: 20120205

REACTIONS (3)
  - Vision blurred [Not Recovered/Not Resolved]
  - Eye pain [Not Recovered/Not Resolved]
  - Abnormal sensation in eye [Unknown]
